FAERS Safety Report 11287752 (Version 1)
Quarter: 2015Q3

REPORT INFORMATION
  Report Type: Spontaneous
  Country: US (occurrence: US)
  Receive Date: 20150721
  Receipt Date: 20150721
  Transmission Date: 20151125
  Serious: No
  Sender: FDA-Public Use
  Company Number: US-UNITED THERAPEUTICS-UNT-2015-000844

PATIENT
  Sex: Female
  Weight: 117.91 kg

DRUGS (3)
  1. COUMADIN [Concomitant]
     Active Substance: WARFARIN SODIUM
     Indication: PRODUCT USED FOR UNKNOWN INDICATION
  2. REMODULIN [Suspect]
     Active Substance: TREPROSTINIL
     Indication: PULMONARY ARTERIAL HYPERTENSION
     Dosage: 0.095 ?G/KG/MIN, CONTINUING
     Route: 041
     Dates: start: 20110711
  3. REMODULIN [Suspect]
     Active Substance: TREPROSTINIL
     Dosage: 0.107 ?G/KG/MIN, CONTINUING
     Dates: start: 20110711

REACTIONS (3)
  - Bronchitis [Unknown]
  - Infection [Unknown]
  - Upper respiratory tract infection [Unknown]
